FAERS Safety Report 23365070 (Version 1)
Quarter: 2024Q1

REPORT INFORMATION
  Report Type: Spontaneous
  Country: IT (occurrence: IT)
  Receive Date: 20240104
  Receipt Date: 20240104
  Transmission Date: 20240409
  Serious: Yes (Hospitalization, Other)
  Sender: FDA-Public Use
  Company Number: IT-MINISAL02-942157

PATIENT
  Age: 71 Year
  Sex: Female

DRUGS (2)
  1. OXALIPLATIN [Suspect]
     Active Substance: OXALIPLATIN
     Indication: Colon cancer
     Dosage: 120 MG OR 14 DAYS
     Route: 065
     Dates: start: 20230808, end: 20230808
  2. FLUOROURACIL [Suspect]
     Active Substance: FLUOROURACIL
     Indication: Colon cancer
     Dosage: 3500 MG INTRAVENOUSLY AND 550 MG INTRAVENOUSLY 14 DAYS
     Route: 042
     Dates: start: 20230808, end: 20230808

REACTIONS (5)
  - Neutropenia [Not Recovered/Not Resolved]
  - Blood creatinine [Not Recovered/Not Resolved]
  - Diarrhoea [Not Recovered/Not Resolved]
  - Pyrexia [Not Recovered/Not Resolved]
  - Vomiting [Not Recovered/Not Resolved]

NARRATIVE: CASE EVENT DATE: 20230822
